FAERS Safety Report 12347082 (Version 2)
Quarter: 2016Q2

REPORT INFORMATION
  Report Type: Report from Study
  Country: CN (occurrence: CN)
  Receive Date: 20160509
  Receipt Date: 20160615
  Transmission Date: 20160815
  Serious: Yes (Death, Other)
  Sender: FDA-Public Use
  Company Number: PHHY2016CN062676

PATIENT
  Age: 52 Year
  Sex: Female
  Weight: 50 kg

DRUGS (2)
  1. LETROZOLE. [Suspect]
     Active Substance: LETROZOLE
     Indication: BREAST CANCER
     Dosage: 2.5 MG, QD (1X/DAY, ONCE DAILY) (CYCLE 3 WAS COMPLETED BEFORE INTERRUPTION)
     Route: 048
     Dates: start: 20151222, end: 20160321
  2. PALBOCICLIB [Suspect]
     Active Substance: PALBOCICLIB
     Indication: BREAST CANCER
     Dosage: 125 MG, QD (1X/DAY, ONCE DAILY) (CYCLE 3 WAS COMPLETED BEFORE INTERRUPTION)
     Route: 048
     Dates: start: 20151222, end: 20160313

REACTIONS (13)
  - Liver function test abnormal [Not Recovered/Not Resolved]
  - Hypophagia [Unknown]
  - Pleural effusion [Unknown]
  - Death [Fatal]
  - Drug-induced liver injury [Not Recovered/Not Resolved]
  - Second primary malignancy [Not Recovered/Not Resolved]
  - Metastasis [Unknown]
  - General physical condition abnormal [Not Recovered/Not Resolved]
  - Movement disorder [Unknown]
  - Hepatic cancer [Not Recovered/Not Resolved]
  - Weight decreased [Unknown]
  - Lymphadenopathy [Unknown]
  - Lymphatic obstruction [Not Recovered/Not Resolved]

NARRATIVE: CASE EVENT DATE: 20160321
